FAERS Safety Report 7929727-1 (Version None)
Quarter: 2011Q4

REPORT INFORMATION
  Report Type: 
  Country: None (occurrence: None)
  Receive Date: 20111116
  Receipt Date: 20111103
  Transmission Date: 20120403
  Serious: Yes (Hospitalization)
  Sender: FDA-Public Use
  Company Number: 1097304

PATIENT
  Sex: Female

DRUGS (3)
  1. DEXAMETHASONE [Suspect]
     Indication: PRODUCT USED FOR UNKNOWN INDICATION
     Route: 014
     Dates: start: 20111029
  2. DEPO-MEDROL [Suspect]
     Indication: PRODUCT USED FOR UNKNOWN INDICATION
     Dates: start: 20111029
  3. LIDOCAINE HYDROCHLORIDE INJECTION, USP, 1% (10 MG/ML) IN PLASTIC MULTI [Suspect]
     Indication: PRODUCT USED FOR UNKNOWN INDICATION
     Route: 014
     Dates: start: 20111029

REACTIONS (2)
  - ARTHRITIS BACTERIAL [None]
  - OFF LABEL USE [None]
